FAERS Safety Report 7863955-9 (Version None)
Quarter: 2011Q4

REPORT INFORMATION
  Report Type: 
  Country: None (occurrence: None)
  Receive Date: 20111028
  Receipt Date: 20111020
  Transmission Date: 20120403
  Serious: No
  Sender: FDA-Public Use
  Company Number: US-BIOGENIDEC-2011BI040245

PATIENT
  Age: 47 Year
  Sex: Female

DRUGS (3)
  1. TYSABRI [Suspect]
     Indication: MULTIPLE SCLEROSIS
     Route: 042
     Dates: start: 20100414
  2. PHENERGAN HCL [Concomitant]
     Indication: PREMEDICATION
     Dates: start: 20100101
  3. IRON [Concomitant]
     Route: 042
     Dates: start: 20111001

REACTIONS (6)
  - CATHETER SITE SWELLING [None]
  - DEVICE LEAKAGE [None]
  - CATHETER SITE PAIN [None]
  - NAUSEA [None]
  - CATHETER SITE RELATED REACTION [None]
  - CATHETER SITE ERYTHEMA [None]
